FAERS Safety Report 21601356 (Version 2)
Quarter: 2024Q2

REPORT INFORMATION
  Report Type: Report from Study
  Country: US (occurrence: US)
  Receive Date: 20221116
  Receipt Date: 20240522
  Transmission Date: 20240716
  Serious: Yes (Hospitalization, Other)
  Sender: FDA-Public Use
  Company Number: US-TAKEDA-US201933005

PATIENT
  Age: 70 Year
  Sex: Female

DRUGS (3)
  1. HUMAN IMMUNOGLOBULIN G\HYALURONIDASE RECOMBINANT HUMAN [Suspect]
     Active Substance: HUMAN IMMUNOGLOBULIN G\HYALURONIDASE (HUMAN RECOMBINANT)
     Indication: Immunodeficiency common variable
     Dosage: 60 GRAM, Q4WEEKS
     Route: 065
  2. HUMAN IMMUNOGLOBULIN G\HYALURONIDASE RECOMBINANT HUMAN [Suspect]
     Active Substance: HUMAN IMMUNOGLOBULIN G\HYALURONIDASE (HUMAN RECOMBINANT)
     Indication: Primary immunodeficiency syndrome
     Dosage: UNK
     Route: 058
  3. PROLIA [Suspect]
     Active Substance: DENOSUMAB
     Indication: Osteoarthritis
     Dosage: UNK
     Route: 065

REACTIONS (17)
  - Cardiac failure congestive [Recovering/Resolving]
  - Fluid retention [Recovering/Resolving]
  - Blood electrolytes abnormal [Recovering/Resolving]
  - Candida infection [Unknown]
  - Cardiac disorder [Unknown]
  - Chronic gastritis [Unknown]
  - Gastrointestinal disorder [Unknown]
  - Fall [Unknown]
  - Inability to afford medication [Unknown]
  - Rotator cuff syndrome [Unknown]
  - Sleep apnoea syndrome [Unknown]
  - Bone loss [Unknown]
  - Exostosis [Unknown]
  - Infusion site swelling [Unknown]
  - Influenza like illness [Unknown]
  - Infusion site erythema [Unknown]
  - Product dose omission issue [Unknown]

NARRATIVE: CASE EVENT DATE: 20240520
